FAERS Safety Report 24270880 (Version 2)
Quarter: 2025Q3

REPORT INFORMATION
  Report Type: Report from Study
  Country: US (occurrence: US)
  Receive Date: 20240831
  Receipt Date: 20250909
  Transmission Date: 20251021
  Serious: Yes (Other)
  Sender: ABBVIE
  Company Number: US-ABBVIE-5900467

PATIENT
  Age: 62 Year
  Sex: Female

DRUGS (1)
  1. SKYRIZI [Suspect]
     Active Substance: RISANKIZUMAB-RZAA
     Indication: Crohn^s disease
     Route: 058
     Dates: start: 20221207

REACTIONS (5)
  - Malignant melanoma [Unknown]
  - Adverse drug reaction [Unknown]
  - Neck pain [Unknown]
  - Spinal fusion surgery [Unknown]
  - Accident [Unknown]

NARRATIVE: CASE EVENT DATE: 20240101
